FAERS Safety Report 8033744-3 (Version None)
Quarter: 2012Q1

REPORT INFORMATION
  Report Type: 
  Country: None (occurrence: None)
  Receive Date: 20120110
  Receipt Date: 20120108
  Transmission Date: 20120608
  Serious: Yes (Other)
  Sender: FDA-Public Use
  Company Number: CZ-GLAXOSMITHKLINE-B0774411A

PATIENT
  Sex: Female

DRUGS (2)
  1. XELODA [Concomitant]
  2. LAPATINIB [Suspect]
     Indication: BREAST CANCER
     Dosage: 1250MG PER DAY
     Route: 048
     Dates: start: 20110328, end: 20110427

REACTIONS (1)
  - SKIN TOXICITY [None]
